FAERS Safety Report 5192395-9 (Version None)
Quarter: 2006Q4

REPORT INFORMATION
  Report Type: 
  Country: None (occurrence: None)
  Receive Date: 20061227
  Receipt Date: 20061026
  Transmission Date: 20070319
  Serious: Yes (Death, Hospitalization)
  Sender: FDA-Public Use
  Company Number: JP-BOEHRINGER INGELHEIM PHARMACEUTICALS, INC.-2006-BP-12631NB

PATIENT
  Age: 87 Year
  Sex: Male

DRUGS (3)
  1. SPIRIVA [Suspect]
     Route: 055
     Dates: start: 20060810, end: 20061031
  2. FUROSEMIDE [Concomitant]
     Dates: end: 20061031
  3. ISOSORBIDE DINITRATE [Concomitant]
     Dates: end: 20061102

REACTIONS (7)
  - CARBON DIOXIDE INCREASED [None]
  - CARDIAC FAILURE [None]
  - CHILLS [None]
  - DELIRIUM [None]
  - MALAISE [None]
  - OXYGEN SATURATION DECREASED [None]
  - PROCEDURAL PAIN [None]
